FAERS Safety Report 5079090-1 (Version None)
Quarter: 2006Q3

REPORT INFORMATION
  Report Type: 
  Country: None (occurrence: None)
  Receive Date: 20060814
  Receipt Date: 20060731
  Transmission Date: 20061208
  Serious: Yes (Other)
  Sender: FDA-Public Use
  Company Number: 2006GB01337

PATIENT
  Sex: Female

DRUGS (2)
  1. LOSEC [Suspect]
     Route: 048
     Dates: start: 19910101
  2. LOSEC [Suspect]
     Indication: HIATUS HERNIA
     Route: 048
     Dates: start: 20060701

REACTIONS (6)
  - DYSPHASIA [None]
  - PHARYNGOLARYNGEAL PAIN [None]
  - SENSATION OF FOREIGN BODY [None]
  - SPEECH DISORDER [None]
  - THYROID CANCER [None]
  - THYROID DISORDER [None]
